FAERS Safety Report 11057254 (Version 3)
Quarter: 2015Q2

REPORT INFORMATION
  Report Type: Spontaneous
  Country: JP (occurrence: JP)
  Receive Date: 20150422
  Receipt Date: 20150508
  Transmission Date: 20150821
  Serious: Yes (Other)
  Sender: FDA-Public Use
  Company Number: JP-MYLANLABS-2015M1012294

PATIENT

DRUGS (5)
  1. PREDNISOLONE TABLETS 1^HOEI^ [Suspect]
     Active Substance: PREDNISOLONE
     Indication: POLYMYOSITIS
  2. TACROLIMUS CAPSULES 0.5MG [PFIZER] [Suspect]
     Active Substance: TACROLIMUS
     Indication: RHEUMATOID ARTHRITIS
     Dosage: 2.5 MG, QD
     Route: 048
     Dates: start: 201407, end: 201504
  3. TACROLIMUS CAPSULES 0.5MG [PFIZER] [Suspect]
     Active Substance: TACROLIMUS
     Indication: POLYMYOSITIS
     Dosage: 3.0 MG, UNK
     Route: 048
     Dates: start: 201504
  4. PREDNISOLONE TABLETS 1^HOEI^ [Suspect]
     Active Substance: PREDNISOLONE
     Indication: RHEUMATOID ARTHRITIS
     Dosage: UNK
     Route: 048
  5. VITAMIN D3 [Concomitant]
     Active Substance: CHOLECALCIFEROL
     Indication: PRODUCT USED FOR UNKNOWN INDICATION

REACTIONS (12)
  - Tremor [Unknown]
  - Dyspnoea exertional [Unknown]
  - Nail avulsion [Unknown]
  - Sensory disturbance [Unknown]
  - White blood cell count increased [Unknown]
  - Malaise [Unknown]
  - Dyspepsia [Unknown]
  - Nail growth abnormal [Unknown]
  - Productive cough [Unknown]
  - Urinary retention [Unknown]
  - Photopsia [Unknown]
  - Onychomycosis [Unknown]

NARRATIVE: CASE EVENT DATE: 201504
